FAERS Safety Report 10239863 (Version 2)
Quarter: 2014Q2

REPORT INFORMATION
  Report Type: Spontaneous
  Country: DE (occurrence: DE)
  Receive Date: 20140616
  Receipt Date: 20140622
  Transmission Date: 20141212
  Serious: Yes (Death, Hospitalization, Other)
  Sender: FDA-Public Use
  Company Number: DE-ABBVIE-14P-062-1248136-00

PATIENT
  Age: 69 Year
  Sex: Male

DRUGS (4)
  1. TRENANTONE [Suspect]
     Indication: PROSTATE CANCER
     Route: 030
     Dates: start: 20111130, end: 20121207
  2. ANTIANDROGENS [Concomitant]
     Indication: PRODUCT USED FOR UNKNOWN INDICATION
     Dates: start: 20121011
  3. FENTANYL [Concomitant]
     Indication: PRODUCT USED FOR UNKNOWN INDICATION
  4. ANTIHYPERTENSIVES [Concomitant]
     Indication: PRODUCT USED FOR UNKNOWN INDICATION

REACTIONS (4)
  - Disease progression [Fatal]
  - Prostatic specific antigen abnormal [Fatal]
  - Prostate cancer [Fatal]
  - Paraplegia [Fatal]
